FAERS Safety Report 25386259 (Version 2)
Quarter: 2025Q2

REPORT INFORMATION
  Report Type: Spontaneous
  Country: US (occurrence: US)
  Receive Date: 20250602
  Receipt Date: 20250617
  Transmission Date: 20250716
  Serious: No
  Sender: BIOGEN
  Company Number: US-BIOGEN-2025BI01303054

PATIENT
  Sex: Male

DRUGS (1)
  1. TYSABRI [Suspect]
     Active Substance: NATALIZUMAB
     Indication: Multiple sclerosis
     Route: 050
     Dates: start: 20160713

REACTIONS (5)
  - Poor venous access [Unknown]
  - Infusion site pain [Unknown]
  - Motor dysfunction [Unknown]
  - Muscle disorder [Unknown]
  - Pain [Unknown]
